FAERS Safety Report 11805856 (Version 1)
Quarter: 2015Q4

REPORT INFORMATION
  Report Type: Spontaneous
  Country: US (occurrence: US)
  Receive Date: 20151207
  Receipt Date: 20151207
  Transmission Date: 20160305
  Serious: No
  Sender: FDA-Public Use
  Company Number: US-009507513-1512USA001592

PATIENT
  Sex: Male

DRUGS (1)
  1. KEYTRUDA [Suspect]
     Active Substance: PEMBROLIZUMAB
     Indication: HEAD AND NECK CANCER
     Dosage: 2 MG/KG, EVERY 3 WEEKS
     Route: 042
     Dates: start: 201509, end: 20151201

REACTIONS (5)
  - Nephritis [Unknown]
  - Oedema [Unknown]
  - Off label use [Unknown]
  - Protein urine present [Unknown]
  - Diabetes mellitus [Unknown]

NARRATIVE: CASE EVENT DATE: 201509
